FAERS Safety Report 10712270 (Version 1)
Quarter: 2015Q1

REPORT INFORMATION
  Report Type: Spontaneous
  Country: US (occurrence: US)
  Receive Date: 20150115
  Receipt Date: 20150115
  Transmission Date: 20150721
  Serious: No
  Sender: FDA-Public Use
  Company Number: US-ASTRAZENECA-2014SE79574

PATIENT
  Age: 815 Month
  Sex: Female
  Weight: 81.6 kg

DRUGS (4)
  1. NEXIUM [Interacting]
     Active Substance: ESOMEPRAZOLE MAGNESIUM
     Indication: GASTROOESOPHAGEAL REFLUX DISEASE
     Route: 048
  2. NEXIUM [Suspect]
     Active Substance: ESOMEPRAZOLE MAGNESIUM
     Indication: GASTROOESOPHAGEAL REFLUX DISEASE
     Route: 048
     Dates: start: 2000
  3. CELEBREX [Concomitant]
     Active Substance: CELECOXIB
     Indication: OSTEOARTHRITIS
  4. LEVOTHYROXIN [Interacting]
     Active Substance: LEVOTHYROXINE
     Indication: THYROID DISORDER
     Route: 048
     Dates: end: 201409

REACTIONS (7)
  - Impaired gastric emptying [Unknown]
  - Throat irritation [Unknown]
  - Oropharyngeal pain [Unknown]
  - Off label use [Recovered/Resolved]
  - Drug interaction [Recovered/Resolved]
  - Gastrointestinal disorder [Unknown]
  - Thyroid disorder [Unknown]

NARRATIVE: CASE EVENT DATE: 2011
